FAERS Safety Report 6566370-3 (Version None)
Quarter: 2010Q1

REPORT INFORMATION
  Report Type: 
  Country: None (occurrence: None)
  Receive Date: 20100202
  Receipt Date: 20100122
  Transmission Date: 20100710
  Serious: Yes (Hospitalization, Other)
  Sender: FDA-Public Use
  Company Number: US-ELI_LILLY_AND_COMPANY-US200910005860

PATIENT
  Age: 74 Year
  Sex: Male

DRUGS (14)
  1. FORTEO [Suspect]
     Indication: OSTEOPOROSIS
     Dosage: UNK, UNK
     Dates: start: 20090501
  2. WARFARIN SODIUM [Concomitant]
     Dosage: 4 MG, UNK
  3. AVODART [Concomitant]
  4. PRIMIDONE [Concomitant]
  5. PREDNISONE [Concomitant]
  6. DUONEB [Concomitant]
     Dosage: UNK, 4/D
  7. CALTRATE [Concomitant]
     Dosage: 600 MG, UNK
  8. DILTIAZEM HCL [Concomitant]
     Dosage: 120 MG, UNK
  9. ADVAIR DISKUS 100/50 [Concomitant]
     Dosage: UNK, UNKNOWN
     Route: 065
  10. SPIRIVA [Concomitant]
     Dosage: UNK, UNKNOWN
     Route: 065
  11. OXYGEN [Concomitant]
     Dosage: UNK, UNKNOWN
     Route: 065
  12. COUMADIN [Concomitant]
     Dosage: UNK, UNKNOWN
     Route: 065
  13. RANITIDINE [Concomitant]
     Dosage: UNK, UNKNOWN
     Route: 065
  14. CALCIUM CARBONATE [Concomitant]
     Dosage: UNK, UNKNOWN
     Route: 065

REACTIONS (4)
  - CHRONIC OBSTRUCTIVE PULMONARY DISEASE [None]
  - EMPHYSEMA [None]
  - PNEUMONIA [None]
  - RESPIRATORY TRACT INFECTION [None]
